FAERS Safety Report 6511077-1 (Version None)
Quarter: 2009Q4

REPORT INFORMATION
  Report Type: 
  Country: None (occurrence: None)
  Receive Date: 20091222
  Receipt Date: 20090223
  Transmission Date: 20100525
  Serious: No
  Sender: FDA-Public Use
  Company Number: US-ASTRAZENECA-2009UW04923

PATIENT
  Sex: Female
  Weight: 49.9 kg

DRUGS (3)
  1. CRESTOR [Suspect]
     Route: 048
     Dates: start: 20090219
  2. BONIVA [Concomitant]
  3. PAIN MEDICATION [Concomitant]
     Indication: PAIN

REACTIONS (3)
  - DYSGEUSIA [None]
  - GASTROINTESTINAL DISORDER [None]
  - NAUSEA [None]
